FAERS Safety Report 12518640 (Version 1)
Quarter: 2016Q2

REPORT INFORMATION
  Report Type: Spontaneous
  Country: IE (occurrence: IE)
  Receive Date: 20160630
  Receipt Date: 20160630
  Transmission Date: 20160815
  Serious: Yes (Death, Hospitalization, Other)
  Sender: FDA-Public Use
  Company Number: IE-GLAXOSMITHKLINE-IE2016089015

PATIENT
  Age: 12 Month
  Sex: Female

DRUGS (3)
  1. FLOLAN [Suspect]
     Active Substance: EPOPROSTENOL SODIUM
     Indication: PULMONARY HYPERTENSION
     Dosage: UNK
     Route: 042
  2. TRACLEER [Suspect]
     Active Substance: BOSENTAN
     Indication: PULMONARY HYPERTENSION
     Dosage: UNK
     Route: 048
  3. SILDENAFIL. [Concomitant]
     Active Substance: SILDENAFIL
     Dosage: UNK
     Route: 048

REACTIONS (14)
  - Pulmonary hypertension [Fatal]
  - Acute respiratory distress syndrome [Fatal]
  - Right ventricular systolic pressure increased [Fatal]
  - Hypoxia [Fatal]
  - No therapeutic response [Not Recovered/Not Resolved]
  - Interstitial lung disease [Fatal]
  - Respiratory rate increased [Fatal]
  - Pulmonary mass [Fatal]
  - Pulmonary capillary haemangiomatosis [Fatal]
  - Angiopathy [Fatal]
  - Computerised tomogram thorax abnormal [Fatal]
  - Hypogammaglobulinaemia [Unknown]
  - Lung disorder [Fatal]
  - Alveolar lung disease [Fatal]
